FAERS Safety Report 7406904-X (Version None)
Quarter: 2011Q2

REPORT INFORMATION
  Report Type: 
  Country: None (occurrence: None)
  Receive Date: 20110411
  Receipt Date: 20110406
  Transmission Date: 20111010
  Serious: Yes (Life-Threatening)
  Sender: FDA-Public Use
  Company Number: FR-ASTRAZENECA-2011SE19334

PATIENT
  Age: 50 Year
  Sex: Female

DRUGS (3)
  1. SUFENTANYL [Suspect]
     Indication: ANAESTHESIA
     Route: 042
     Dates: start: 20100310, end: 20100310
  2. DIPRIVAN [Suspect]
     Indication: ANAESTHESIA
     Route: 042
     Dates: start: 20100310, end: 20100310
  3. TRACRIUM [Suspect]
     Indication: ANAESTHESIA
     Route: 042
     Dates: start: 20100310, end: 20100310

REACTIONS (2)
  - HYPERSENSITIVITY [None]
  - HYPOTENSION [None]
